FAERS Safety Report 5302932-9 (Version None)
Quarter: 2007Q2

REPORT INFORMATION
  Report Type: 
  Country: None (occurrence: None)
  Receive Date: 20070417
  Receipt Date: 20070417
  Transmission Date: 20071010
  Serious: Yes (Hospitalization)
  Sender: FDA-Public Use
  Company Number: None

PATIENT
  Sex: Male
  Weight: 82.5547 kg

DRUGS (10)
  1. DOXIL [Suspect]
     Indication: PROSTATE CANCER
     Dosage: 58 MG DAY 1 Q 28 DAYS IV
     Route: 042
     Dates: start: 20070201, end: 20070201
  2. TAXOTERE [Suspect]
     Indication: PROSTATE CANCER
     Dosage: 58 MG D 1,8,15 Q 28 DAYS IV
     Route: 042
     Dates: start: 20070201, end: 20070202
  3. ASPIRIN [Concomitant]
  4. IMODIUM [Concomitant]
  5. ATENOLOL [Concomitant]
  6. NORVASC [Concomitant]
  7. LISINOPRIL [Concomitant]
  8. POTASSIUM CHLORIDE [Concomitant]
  9. LASIX [Concomitant]
  10. PEPCID [Concomitant]

REACTIONS (6)
  - CHOLECYSTITIS ACUTE [None]
  - ILIAC ARTERY OCCLUSION [None]
  - PERIPHERAL ISCHAEMIA [None]
  - SEPSIS SYNDROME [None]
  - UROGENITAL FISTULA [None]
  - UROSEPSIS [None]
